FAERS Safety Report 9394786 (Version 2)
Quarter: 2013Q3

REPORT INFORMATION
  Report Type: Report from Study
  Country: DE (occurrence: DE)
  Receive Date: 20130711
  Receipt Date: 20130918
  Transmission Date: 20140515
  Serious: Yes (Other)
  Sender: FDA-Public Use
  Company Number: DE-CELGENEUS-062-21880-13070676

PATIENT
  Sex: 0

DRUGS (5)
  1. REVLIMID [Suspect]
     Indication: PLASMA CELL MYELOMA
     Dosage: 2.5 MILLIGRAM
     Route: 048
  2. REVLIMID [Suspect]
     Dosage: 5 MILLIGRAM
     Route: 048
  3. REVLIMID [Suspect]
     Dosage: 10 MILLIGRAM
     Route: 048
  4. DEXAMETHASONE [Suspect]
     Indication: PLASMA CELL MYELOMA
     Route: 065
  5. ADRIAMYCIN [Suspect]
     Indication: PLASMA CELL MYELOMA
     Route: 065

REACTIONS (1)
  - Graft versus host disease [Unknown]
